FAERS Safety Report 7878500-1 (Version None)
Quarter: 2011Q4

REPORT INFORMATION
  Report Type: 
  Country: None (occurrence: None)
  Receive Date: 20111014
  Receipt Date: 20110805
  Transmission Date: 20120403
  Serious: No
  Sender: FDA-Public Use
  Company Number: 295275USA

PATIENT
  Sex: Male

DRUGS (1)
  1. FENTANYL [Suspect]

REACTIONS (3)
  - OVERDOSE [None]
  - CONFUSIONAL STATE [None]
  - OFF LABEL USE [None]
